FAERS Safety Report 5802263-4 (Version None)
Quarter: 2008Q3

REPORT INFORMATION
  Report Type: 
  Country: None (occurrence: None)
  Receive Date: 20080707
  Receipt Date: 20080606
  Transmission Date: 20090109
  Serious: Yes (Other)
  Sender: FDA-Public Use
  Company Number: US-PFIZER INC-2008054431

PATIENT

DRUGS (1)
  1. CHANTIX [Suspect]
     Dates: start: 20080101, end: 20080101

REACTIONS (3)
  - ANGER [None]
  - IRRITABILITY [None]
  - MOOD ALTERED [None]
